FAERS Safety Report 6430973-7 (Version None)
Quarter: 2009Q4

REPORT INFORMATION
  Report Type: 
  Country: None (occurrence: None)
  Receive Date: 20091106
  Receipt Date: 20091029
  Transmission Date: 20100525
  Serious: Yes (Other)
  Sender: FDA-Public Use
  Company Number: BR-PFIZER INC-2009267429

PATIENT
  Age: 26 Year
  Sex: Female
  Weight: 67 kg

DRUGS (2)
  1. DEPO-PROVERA [Suspect]
     Dosage: 150 MG, UNK
     Route: 030
     Dates: start: 20010101, end: 20030101
  2. DEPO-PROVERA [Suspect]
     Dosage: UNK
     Route: 030

REACTIONS (3)
  - CORNEAL TRANSPLANT [None]
  - TRANSPLANT REJECTION [None]
  - WEIGHT INCREASED [None]
